FAERS Safety Report 15006425 (Version 1)
Quarter: 2018Q2

REPORT INFORMATION
  Report Type: Report from Study
  Country: US (occurrence: US)
  Receive Date: 20180613
  Receipt Date: 20180613
  Transmission Date: 20180711
  Serious: No
  Sender: FDA-Public Use
  Company Number: US-US WORLDMEDS, LLC-USW201707-000993

PATIENT
  Sex: Male

DRUGS (2)
  1. APOKYN [Suspect]
     Active Substance: APOMORPHINE HYDROCHLORIDE
  2. LEVODOPA [Concomitant]
     Active Substance: LEVODOPA

REACTIONS (4)
  - Insomnia [Unknown]
  - Musculoskeletal stiffness [Unknown]
  - Constipation [Unknown]
  - Drug effect decreased [Unknown]
